FAERS Safety Report 4745641-7 (Version None)
Quarter: 2005Q3

REPORT INFORMATION
  Report Type: 
  Country: None (occurrence: None)
  Receive Date: 20050816
  Receipt Date: 20050527
  Transmission Date: 20060218
  Serious: Yes (Hospitalization)
  Sender: FDA-Public Use
  Company Number: JP-SP-2005-01018

PATIENT
  Age: 56 Year
  Sex: Female

DRUGS (4)
  1. IMMUCYST [Suspect]
     Indication: BLADDER CANCER
     Route: 043
     Dates: start: 20040601, end: 20040706
  2. DICLOFENAC SODIUM [Suspect]
     Indication: PAIN
     Route: 054
     Dates: start: 20040601, end: 20040706
  3. AMITRIPTYLINE HCL [Concomitant]
     Indication: CYSTITIS INTERSTITIAL
     Route: 048
  4. SUPLATAST TOSILATE [Concomitant]
     Indication: CYSTITIS INTERSTITIAL
     Dosage: UNKNOWN
     Route: 048

REACTIONS (5)
  - DYSURIA [None]
  - PAIN [None]
  - SKIN HYPERPIGMENTATION [None]
  - TUBERCULIN TEST POSITIVE [None]
  - URTICARIA GENERALISED [None]
